FAERS Safety Report 8503219-3 (Version None)
Quarter: 2012Q3

REPORT INFORMATION
  Report Type: 
  Country: None (occurrence: None)
  Receive Date: 20120711
  Receipt Date: 20120702
  Transmission Date: 20120928
  Serious: Yes (Other)
  Sender: FDA-Public Use
  Company Number: FR-ASTRAZENECA-2012SE42242

PATIENT
  Age: 45 Year
  Sex: Male
  Weight: 92 kg

DRUGS (4)
  1. QUETIAPINE FUMARATE [Suspect]
     Indication: SCHIZOAFFECTIVE DISORDER
     Route: 048
  2. ANAFRANIL [Concomitant]
  3. QUETIAPINE FUMARATE [Suspect]
     Route: 048
     Dates: start: 20120301, end: 20120401
  4. LEXOMIL [Concomitant]

REACTIONS (2)
  - AGGRESSION [None]
  - DISINHIBITION [None]
